FAERS Safety Report 8533790-7 (Version None)
Quarter: 2012Q3

REPORT INFORMATION
  Report Type: 
  Country: None (occurrence: None)
  Receive Date: 20120711
  Receipt Date: 20110203
  Transmission Date: 20120928
  Serious: No
  Sender: FDA-Public Use
  Company Number: PP11-005

PATIENT
  Sex: Female

DRUGS (1)
  1. ALLERGENIC EXTRACTS- PATIENT TREATMENT SETS [Suspect]
     Indication: RHINITIS ALLERGIC

REACTIONS (1)
  - ADVERSE REACTION [None]
